FAERS Safety Report 7460495-6 (Version None)
Quarter: 2011Q2

REPORT INFORMATION
  Report Type: 
  Country: None (occurrence: None)
  Receive Date: 20110505
  Receipt Date: 20110429
  Transmission Date: 20111010
  Serious: Yes (Other)
  Sender: FDA-Public Use
  Company Number: FR-PFIZER INC-2010132313

PATIENT
  Sex: Male

DRUGS (7)
  1. RIVOTRIL [Suspect]
     Indication: NEURALGIA
     Dosage: 2 MG, 2X/DAY
  2. ANDROGEL [Suspect]
     Dosage: 100 MG, UNK
  3. VIAGRA [Suspect]
     Indication: ERECTILE DYSFUNCTION
     Dosage: 100 MG, UNK
  4. NEURONTIN [Suspect]
     Indication: NEURALGIA
     Dosage: UNK
  5. ATARAX [Suspect]
     Indication: NEURALGIA
     Dosage: UNK
  6. SERESTA [Suspect]
     Indication: NEURALGIA
  7. ALPROSTADIL [Suspect]
     Dosage: 1000 UG, UNK
     Route: 066

REACTIONS (5)
  - PHYSICAL ASSAULT [None]
  - FEELING ABNORMAL [None]
  - SOMNOLENCE [None]
  - HYPERVIGILANCE [None]
  - AGGRESSION [None]
